FAERS Safety Report 4476766-1 (Version None)
Quarter: 2004Q4

REPORT INFORMATION
  Report Type: 
  Country: None (occurrence: None)
  Receive Date: 20041013
  Receipt Date: 20040928
  Transmission Date: 20050328
  Serious: Yes (Hospitalization)
  Sender: FDA-Public Use
  Company Number: USA040979591

PATIENT
  Age: 55 Year
  Sex: Male

DRUGS (6)
  1. CYMBALTA [Suspect]
     Indication: DEPRESSION
     Dosage: 60 MG DAY
  2. SEROQUEL [Concomitant]
  3. KLONOPIN [Concomitant]
  4. NEXIUM [Concomitant]
  5. FLUTICASONE PROPIONATE W/SALMETEROL [Concomitant]
  6. IMDUR (ISOSRIDE MONONITRATE) [Concomitant]

REACTIONS (5)
  - ASPARTATE AMINOTRANSFERASE INCREASED [None]
  - BLOOD ALBUMIN DECREASED [None]
  - BLOOD CREATINE PHOSPHOKINASE INCREASED [None]
  - CORONARY ARTERY OCCLUSION [None]
  - PROTHROMBIN TIME PROLONGED [None]
